FAERS Safety Report 19192126 (Version 1)
Quarter: 2021Q2

REPORT INFORMATION
  Report Type: Spontaneous
  Country: US (occurrence: US)
  Receive Date: 20210429
  Receipt Date: 20210429
  Transmission Date: 20210717
  Serious: No
  Sender: FDA-Public Use
  Company Number: US-SA-2021SA127253

PATIENT
  Age: 69 Year
  Sex: Female

DRUGS (3)
  1. TRESIBA [Concomitant]
     Active Substance: INSULIN DEGLUDEC
     Dosage: 20 IU
     Route: 065
  2. ADMELOG [Suspect]
     Active Substance: INSULIN LISPRO
     Indication: TYPE 2 DIABETES MELLITUS
     Dosage: 6 IU, BID(IN THE MORNING AND LUNCH TIME )
     Route: 065
     Dates: start: 202103, end: 2021
  3. ADMELOG [Suspect]
     Active Substance: INSULIN LISPRO
     Dosage: 3 IU FOR 2 MEALS DURING THE DAY
     Route: 065
     Dates: start: 2021

REACTIONS (2)
  - Blood glucose fluctuation [Not Recovered/Not Resolved]
  - Therapeutic response decreased [Not Recovered/Not Resolved]

NARRATIVE: CASE EVENT DATE: 2021
